FAERS Safety Report 16314215 (Version 1)
Quarter: 2019Q2

REPORT INFORMATION
  Report Type: Spontaneous
  Country: US (occurrence: US)
  Receive Date: 20190514
  Receipt Date: 20190514
  Transmission Date: 20190711
  Serious: Yes (Disabling)
  Sender: FDA-Public Use
  Company Number: None

PATIENT
  Age: 41 Year
  Sex: Female
  Weight: 117 kg

DRUGS (23)
  1. MICROGESTIN [Concomitant]
     Active Substance: ETHINYL ESTRADIOL\NORETHINDRONE ACETATE
  2. IRBESARTAN. [Concomitant]
     Active Substance: IRBESARTAN
  3. DIARHETIC [Concomitant]
  4. BELSOMRA [Concomitant]
     Active Substance: SUVOREXANT
  5. ADVIL [Concomitant]
     Active Substance: IBUPROFEN
  6. LYRICA [Concomitant]
     Active Substance: PREGABALIN
  7. SOMA [Concomitant]
     Active Substance: CARISOPRODOL
  8. WELLBUTRIN [Concomitant]
     Active Substance: BUPROPION HYDROCHLORIDE
  9. VITAMIN B12 [Concomitant]
     Active Substance: CYANOCOBALAMIN
  10. NONE VITAMIN D [Concomitant]
  11. DEXILANT [Concomitant]
     Active Substance: DEXLANSOPRAZOLE
  12. MODAFINIL. [Concomitant]
     Active Substance: MODAFINIL
  13. DICYCLOMINE [Concomitant]
     Active Substance: DICYCLOMINE HYDROCHLORIDE
  14. DULOXETINE. [Concomitant]
     Active Substance: DULOXETINE
  15. EMGALITY [Concomitant]
     Active Substance: GALCANEZUMAB-GNLM
  16. EXCEDRIN [Concomitant]
     Active Substance: ACETAMINOPHEN\ASPIRIN\CAFFEINE
  17. CELEBREX [Concomitant]
     Active Substance: CELECOXIB
  18. GILENYA [Suspect]
     Active Substance: FINGOLIMOD HYDROCHLORIDE
     Indication: MULTIPLE SCLEROSIS
     Dosage: ?          QUANTITY:1 CAPSULE(S);?
     Route: 048
     Dates: start: 20181015, end: 20190306
  19. ELETRIPTAN HBR [Concomitant]
     Active Substance: ELETRIPTAN HYDROBROMIDE
  20. BOTOX [Concomitant]
     Active Substance: ONABOTULINUMTOXINA
  21. BUSPRIONE [Concomitant]
  22. NONE IRON SUPPLEMENTS [Concomitant]
  23. VITAMIN C [Concomitant]
     Active Substance: ASCORBIC ACID

REACTIONS (2)
  - Amenorrhoea [None]
  - Menstrual disorder [None]

NARRATIVE: CASE EVENT DATE: 20181015
